FAERS Safety Report 18473125 (Version 1)
Quarter: 2020Q4

REPORT INFORMATION
  Report Type: Spontaneous
  Country: CA (occurrence: CA)
  Receive Date: 20201106
  Receipt Date: 20201106
  Transmission Date: 20210114
  Serious: No
  Sender: FDA-Public Use
  Company Number: CA-SA-2020SA308389

PATIENT

DRUGS (1)
  1. LOVENOX [Suspect]
     Active Substance: ENOXAPARIN SODIUM
     Dosage: 120 MG

REACTIONS (3)
  - Syringe issue [Unknown]
  - Occupational exposure to product [Unknown]
  - Device malfunction [Unknown]
